FAERS Safety Report 16129575 (Version 1)
Quarter: 2019Q1

REPORT INFORMATION
  Report Type: Spontaneous
  Country: BR (occurrence: BR)
  Receive Date: 20190328
  Receipt Date: 20190328
  Transmission Date: 20190418
  Serious: Yes (Other)
  Sender: FDA-Public Use
  Company Number: BR-MYLANLABS-2019M1028881

PATIENT
  Sex: Male

DRUGS (3)
  1. LEPONEX 100 MG [Suspect]
     Active Substance: CLOZAPINE
     Dosage: UNK
     Route: 048
  2. LEPONEX 100 MG [Suspect]
     Active Substance: CLOZAPINE
     Indication: SCHIZOPHRENIA
     Dosage: 500 MILLIGRAM, QD
     Route: 048
     Dates: end: 201811
  3. CLOZAPINE. [Suspect]
     Active Substance: CLOZAPINE
     Indication: SCHIZOPHRENIA
     Dosage: UNK

REACTIONS (3)
  - Product substitution issue [Unknown]
  - Schizophrenia [Unknown]
  - Product dose omission [Unknown]

NARRATIVE: CASE EVENT DATE: 2009
